FAERS Safety Report 16526655 (Version 2)
Quarter: 2019Q3

REPORT INFORMATION
  Report Type: Other
  Country: CA (occurrence: CA)
  Receive Date: 20190704
  Receipt Date: 20190916
  Transmission Date: 20191004
  Serious: Yes (Other)
  Sender: FDA-Public Use
  Company Number: CA-APOTEX-2019AP017332

PATIENT
  Age: 66 Year
  Sex: Female

DRUGS (1)
  1. GEMCITABINE. [Suspect]
     Active Substance: GEMCITABINE
     Indication: PRODUCT USED FOR UNKNOWN INDICATION
     Dosage: 1200 MG, 1 EVERY 3 WEEKS
     Route: 042

REACTIONS (2)
  - Therapy non-responder [Not Recovered/Not Resolved]
  - Neoplasm progression [Not Recovered/Not Resolved]
